FAERS Safety Report 5726924-0 (Version None)
Quarter: 2008Q2

REPORT INFORMATION
  Report Type: 
  Country: None (occurrence: None)
  Receive Date: 20080502
  Receipt Date: 20080425
  Transmission Date: 20081010
  Serious: Yes (Other)
  Sender: FDA-Public Use
  Company Number: US-PFIZER INC-2008036973

PATIENT
  Sex: Female
  Weight: 79.09 kg

DRUGS (3)
  1. DETROL LA [Suspect]
     Indication: HYPERTONIC BLADDER
     Dates: start: 20070101, end: 20080401
  2. ANTIHYPERTENSIVES [Concomitant]
  3. CARDIAC THERAPY [Concomitant]

REACTIONS (1)
  - AMNESIA [None]
